FAERS Safety Report 24223845 (Version 1)
Quarter: 2024Q3

REPORT INFORMATION
  Report Type: Spontaneous
  Country: IN (occurrence: IN)
  Receive Date: 20240819
  Receipt Date: 20240819
  Transmission Date: 20241016
  Serious: Yes (Death)
  Sender: NOVARTIS
  Company Number: IN-002147023-NVSC2024IN167457

PATIENT
  Sex: Female

DRUGS (1)
  1. GLIVEC [Suspect]
     Active Substance: IMATINIB MESYLATE
     Indication: Chronic myeloid leukaemia
     Dosage: 400 MG (400MG (1 X 400MG))
     Route: 065

REACTIONS (2)
  - Throat cancer [Fatal]
  - Second primary malignancy [Fatal]
